FAERS Safety Report 8174100-7 (Version None)
Quarter: 2012Q1

REPORT INFORMATION
  Report Type: 
  Country: None (occurrence: None)
  Receive Date: 20120227
  Receipt Date: 20120213
  Transmission Date: 20120608
  Serious: Yes (Hospitalization, Other)
  Sender: FDA-Public Use
  Company Number: AUR-APL-2012-01072

PATIENT
  Age: 9 Month
  Sex: Male
  Weight: 8.6 kg

DRUGS (2)
  1. FLUORIDE (SODIUM FLUORIDE) [Concomitant]
  2. VENLAFAXINE [Suspect]
     Indication: PRODUCT USED FOR UNKNOWN INDICATION
     Dosage: (150 MG), ORAL
     Route: 048

REACTIONS (12)
  - MENTAL STATUS CHANGES [None]
  - EYE MOVEMENT DISORDER [None]
  - FLUSHING [None]
  - TREMOR [None]
  - SEDATION [None]
  - PRURITUS GENERALISED [None]
  - ACCIDENTAL EXPOSURE [None]
  - PARKINSONIAN REST TREMOR [None]
  - MYDRIASIS [None]
  - ABNORMAL BEHAVIOUR [None]
  - DIET REFUSAL [None]
  - IRRITABILITY [None]
